FAERS Safety Report 10635945 (Version 1)
Quarter: 2014Q4

REPORT INFORMATION
  Report Type: Spontaneous
  Country: US (occurrence: US)
  Receive Date: 20141205
  Receipt Date: 20141205
  Transmission Date: 20150529
  Serious: No
  Sender: FDA-Public Use
  Company Number: US-ELI_LILLY_AND_COMPANY-US201411009453

PATIENT
  Sex: Female

DRUGS (3)
  1. HUMALOG [Suspect]
     Active Substance: INSULIN LISPRO
     Indication: TYPE 2 DIABETES MELLITUS
     Dosage: UNK, PRN
     Route: 065
     Dates: start: 201411
  2. LANTUS [Suspect]
     Active Substance: INSULIN GLARGINE
     Indication: TYPE 2 DIABETES MELLITUS
     Dosage: UNK UNK, PRN
     Route: 065
  3. HUMALOG [Suspect]
     Active Substance: INSULIN LISPRO
     Indication: TYPE 2 DIABETES MELLITUS
     Dosage: UNK UNK, BID
     Route: 065
     Dates: start: 2011, end: 201411

REACTIONS (14)
  - Blood glucose increased [Unknown]
  - Ligament injury [Unknown]
  - Blood glucose increased [Unknown]
  - Cystitis [Unknown]
  - Nephrolithiasis [Unknown]
  - Abdominal pain upper [Unknown]
  - Swollen tongue [Unknown]
  - Nasopharyngitis [Unknown]
  - Joint injury [Unknown]
  - Gait disturbance [Unknown]
  - Blood glucose decreased [Unknown]
  - Adverse drug reaction [Unknown]
  - Lethargy [Unknown]
  - Burning sensation [Unknown]

NARRATIVE: CASE EVENT DATE: 201410
